FAERS Safety Report 6194587-9 (Version None)
Quarter: 2009Q2

REPORT INFORMATION
  Report Type: 
  Country: None (occurrence: None)
  Receive Date: 20090519
  Receipt Date: 20070928
  Transmission Date: 20091009
  Serious: Yes (Hospitalization, Other)
  Sender: FDA-Public Use
  Company Number: US-ASTRAZENECA-2007UW07699

PATIENT
  Age: 12610 Day
  Sex: Female
  Weight: 125.6 kg

DRUGS (31)
  1. SEROQUEL [Suspect]
     Indication: BIPOLAR DISORDER
     Route: 048
     Dates: start: 20040701, end: 20040708
  2. SEROQUEL [Suspect]
     Indication: DEPRESSION
     Route: 048
     Dates: start: 20040701, end: 20040708
  3. SEROQUEL [Suspect]
     Dosage: 25-100 MG
     Route: 048
     Dates: start: 20040701
  4. SEROQUEL [Suspect]
     Dosage: 25-100 MG
     Route: 048
     Dates: start: 20040701
  5. SEROQUEL [Suspect]
     Route: 065
     Dates: start: 20040901, end: 20060501
  6. SEROQUEL [Suspect]
     Route: 065
     Dates: start: 20040901, end: 20060501
  7. ABILIFY [Concomitant]
     Route: 048
     Dates: start: 20040101, end: 20050101
  8. TRAZODONE HCL [Concomitant]
     Route: 065
  9. LEXAPRO [Concomitant]
     Dosage: 10-30 MG
     Route: 048
  10. XANAX [Concomitant]
     Route: 065
  11. VICODIN [Concomitant]
     Indication: PAIN
     Route: 048
  12. ADVAIR DISKUS 100/50 [Concomitant]
     Dosage: 250/50 1 PUFF TWO TIMES A DAY
     Route: 055
  13. ALAVERT [Concomitant]
     Route: 048
  14. ATROVENT [Concomitant]
     Route: 055
  15. ALBUTEROL [Concomitant]
     Dosage: 2 PUFFS
     Route: 055
  16. PREMARIN [Concomitant]
     Route: 048
  17. GLUCOPHAGE [Concomitant]
     Indication: DIABETES MELLITUS
     Dosage: 1000-2000 MG
     Route: 048
  18. BUPROPION HCL [Concomitant]
     Route: 048
  19. VISTARIL [Concomitant]
     Indication: PAIN
     Route: 048
  20. ZOCOR [Concomitant]
     Route: 048
  21. SPIRIVA [Concomitant]
     Dosage: 18 MCG 1 PUFF DAILY
     Route: 055
  22. NAPROSYN [Concomitant]
     Route: 048
  23. REMERON [Concomitant]
     Dosage: 15-25 MG
     Route: 048
  24. KLONOPIN [Concomitant]
     Dosage: 0.5-1 MG
     Route: 048
  25. PAXIL [Concomitant]
     Route: 048
  26. DEPO-PROVERA [Concomitant]
     Dosage: 150 MG PER ML
     Route: 030
  27. ULTRAM [Concomitant]
     Route: 048
  28. AMBIEN [Concomitant]
     Dosage: 5-10 MG
     Route: 048
  29. SINGULAIR [Concomitant]
     Route: 048
  30. ROZEREM [Concomitant]
     Route: 048
  31. HYDROCHLOROTHIAZIDE [Concomitant]
     Route: 048

REACTIONS (29)
  - ABDOMINAL MASS [None]
  - ADRENAL ADENOMA [None]
  - AGORAPHOBIA [None]
  - AMENORRHOEA [None]
  - ASTHMA [None]
  - ATELECTASIS [None]
  - BLOOD GLUCOSE INCREASED [None]
  - BODY TINEA [None]
  - BRONCHITIS CHRONIC [None]
  - CHRONIC OBSTRUCTIVE PULMONARY DISEASE [None]
  - CONSTIPATION [None]
  - DIABETES MELLITUS [None]
  - DISSOCIATIVE DISORDER [None]
  - DYSMENORRHOEA [None]
  - FLANK PAIN [None]
  - HYPERKALAEMIA [None]
  - HYPERTENSION [None]
  - HYSTERECTOMY [None]
  - INFECTIVE EXACERBATION OF CHRONIC OBSTRUCTIVE AIRWAYS DISEASE [None]
  - MASS [None]
  - OEDEMA PERIPHERAL [None]
  - ONYCHOMYCOSIS [None]
  - PAIN IN EXTREMITY [None]
  - PARATRACHEAL LYMPHADENOPATHY [None]
  - PHARYNGITIS [None]
  - PNEUMONIA [None]
  - POLYCYSTIC OVARIES [None]
  - RENAL PAIN [None]
  - SKIN CANDIDA [None]
